FAERS Safety Report 7480717-5 (Version None)
Quarter: 2011Q2

REPORT INFORMATION
  Report Type: 
  Country: None (occurrence: None)
  Receive Date: 20110516
  Receipt Date: 20110502
  Transmission Date: 20111010
  Serious: Yes (Other)
  Sender: FDA-Public Use
  Company Number: US-BAYER-201039250NA

PATIENT
  Age: 32 Year
  Sex: Female
  Weight: 114.29 kg

DRUGS (4)
  1. YAZ [Suspect]
     Indication: PREMENSTRUAL SYNDROME
     Route: 048
     Dates: start: 20070101
  2. YASMIN [Suspect]
     Indication: PREMENSTRUAL SYNDROME
     Dosage: UNK
     Route: 048
     Dates: start: 20050101, end: 20080101
  3. LEXAPRO [Concomitant]
     Indication: ANXIETY
     Dosage: 10 MG, UNK
     Route: 048
     Dates: end: 20080917
  4. IRON MEDICATIONS [Concomitant]
     Indication: BLOOD IRON DECREASED
     Dosage: UNK
     Dates: start: 20100101

REACTIONS (4)
  - BILIARY COLIC [None]
  - GALLBLADDER NON-FUNCTIONING [None]
  - CHOLELITHIASIS [None]
  - ABDOMINAL PAIN [None]
